FAERS Safety Report 7740271-7 (Version None)
Quarter: 2011Q3

REPORT INFORMATION
  Report Type: 
  Country: None (occurrence: None)
  Receive Date: 20110909
  Receipt Date: 20110902
  Transmission Date: 20111222
  Serious: Yes (Hospitalization)
  Sender: FDA-Public Use
  Company Number: BR-ROCHE-800898

PATIENT

DRUGS (2)
  1. XELODA [Suspect]
     Route: 065
     Dates: start: 20100901, end: 20110801
  2. AVASTIN [Suspect]
     Route: 065
     Dates: start: 20100901, end: 20110801

REACTIONS (4)
  - ABDOMINAL PAIN [None]
  - EPISTAXIS [None]
  - GASTROINTESTINAL OEDEMA [None]
  - MOUTH HAEMORRHAGE [None]
